FAERS Safety Report 6080758-9 (Version None)
Quarter: 2009Q1

REPORT INFORMATION
  Report Type: 
  Country: None (occurrence: None)
  Receive Date: 20090121
  Receipt Date: 20080819
  Transmission Date: 20090719
  Serious: Yes (Other)
  Sender: FDA-Public Use
  Company Number: US-WYE-H05628708

PATIENT
  Age: 56 Year
  Sex: Female

DRUGS (8)
  1. PREMPRO [Suspect]
     Indication: MENOPAUSAL SYMPTOMS
     Dosage: 0.625MG/2.5 MG
     Dates: start: 19950101, end: 20000101
  2. CLIMARA [Suspect]
     Indication: MENOPAUSAL SYMPTOMS
     Dosage: TRANSDERMAL
     Route: 062
     Dates: start: 19950101
  3. DEPO PROVERA (MEDROXYPROGESTERONE ACETATE, ) [Suspect]
     Indication: MENOPAUSAL SYMPTOMS
     Dates: start: 19900101
  4. DEPO PROVERA (MEDROXYPROGESTERONE ACETATE, ) [Suspect]
     Indication: MENSTRUATION IRREGULAR
     Dates: start: 19900101
  5. ESTRADERM [Suspect]
     Indication: MENOPAUSAL SYMPTOMS
  6. PAXIL [Concomitant]
  7. VIOXX [Concomitant]
  8. EXCEDRIN (ACETYLSALICYLIC ACID/CAFFEINE/PARACETAMOL/SALICYLAMIDE) [Concomitant]

REACTIONS (1)
  - BREAST CANCER [None]
